FAERS Safety Report 22189630 (Version 1)
Quarter: 2023Q2

REPORT INFORMATION
  Report Type: Spontaneous
  Country: BR (occurrence: BR)
  Receive Date: 20230410
  Receipt Date: 20230410
  Transmission Date: 20230722
  Serious: Yes (Other)
  Sender: FDA-Public Use
  Company Number: BR-CELLTRION INC.-2022BR016382

PATIENT

DRUGS (10)
  1. INFLIXIMAB [Suspect]
     Active Substance: INFLIXIMAB
     Indication: Crohn^s disease
     Dosage: 4 AMPOULES EVERY 8 WEEKS
     Route: 042
     Dates: start: 20220919
  2. INFLIXIMAB [Suspect]
     Active Substance: INFLIXIMAB
     Dosage: 4 AMPOULES OF 100MG EVERY 8 WEEKS
     Route: 042
     Dates: start: 20221014
  3. OMEGA-3 FATTY ACIDS [Concomitant]
     Active Substance: OMEGA-3 FATTY ACIDS
     Indication: Supplementation therapy
     Dosage: 2 CAPSULES PER DAY
     Route: 048
     Dates: start: 2015
  4. VITAMIN D NOS [Concomitant]
     Active Substance: VITAMIN D NOS
     Indication: Supplementation therapy
     Dosage: (50.000UI) 1 CAPSULE PER WEEK
     Route: 048
     Dates: start: 2015
  5. VITAMIN C [Concomitant]
     Active Substance: ASCORBIC ACID
     Indication: Supplementation therapy
     Dosage: 1 CAPSULE PER DAY
     Route: 048
     Dates: start: 2015
  6. PRASTERONE [Concomitant]
     Active Substance: PRASTERONE
     Indication: Supplementation therapy
     Dosage: 1 CAPSULE PER DAY
     Route: 048
     Dates: start: 2015
  7. COENZYME Q10 [Concomitant]
     Active Substance: DIETARY SUPPLEMENT\UBIDECARENONE
     Indication: Supplementation therapy
     Dosage: 1 CAPSULE PER DAY
     Route: 048
     Dates: start: 2022
  8. MAGNESIUM [Concomitant]
     Active Substance: MAGNESIUM
     Indication: Supplementation therapy
     Dosage: 1 CAPSULE PER DAY
     Route: 048
     Dates: start: 2015
  9. THREONINE [Concomitant]
     Active Substance: THREONINE
     Indication: Supplementation therapy
     Dosage: 2 CAPSULES PER DAY
     Route: 048
     Dates: start: 2015
  10. ZINC [Concomitant]
     Active Substance: ZINC
     Indication: Supplementation therapy
     Dosage: 1 CAPSULE PER DAY
     Route: 048
     Dates: start: 2015

REACTIONS (4)
  - Headache [Recovered/Resolved]
  - Nausea [Recovered/Resolved]
  - Vomiting [Recovered/Resolved]
  - Off label use [Recovered/Resolved]

NARRATIVE: CASE EVENT DATE: 20220919
